FAERS Safety Report 8100088-0 (Version None)
Quarter: 2012Q1

REPORT INFORMATION
  Report Type: 
  Country: None (occurrence: None)
  Receive Date: 20120129
  Receipt Date: 20111125
  Transmission Date: 20120608
  Serious: No
  Sender: FDA-Public Use
  Company Number: US-ABBOTT-11P-163-0878907-00

PATIENT
  Sex: Female

DRUGS (1)
  1. HUMIRA [Suspect]
     Indication: PSORIASIS
     Dosage: STARTER KIT

REACTIONS (4)
  - DYSGEUSIA [None]
  - PAROSMIA [None]
  - ILL-DEFINED DISORDER [None]
  - BLISTER [None]
